FAERS Safety Report 20470800 (Version 1)
Quarter: 2022Q1

REPORT INFORMATION
  Report Type: Spontaneous
  Country: US (occurrence: US)
  Receive Date: 20220214
  Receipt Date: 20220214
  Transmission Date: 20220423
  Serious: No
  Sender: FDA-Public Use
  Company Number: US-KALA PHARAMACEUTICALS-2021KLA00129

PATIENT
  Age: 64 Year
  Sex: Female
  Weight: 61.678 kg

DRUGS (2)
  1. EYSUVIS [Suspect]
     Active Substance: LOTEPREDNOL ETABONATE
     Indication: Vision blurred
     Dosage: 1 DROP, 2X/DAY IN EACH EYE
     Route: 047
     Dates: start: 202112
  2. EYSUVIS [Suspect]
     Active Substance: LOTEPREDNOL ETABONATE
     Indication: Dry eye

REACTIONS (2)
  - Foreign body sensation in eyes [Not Recovered/Not Resolved]
  - Instillation site pain [Recovered/Resolved]

NARRATIVE: CASE EVENT DATE: 20211201
